FAERS Safety Report 7927998-9 (Version None)
Quarter: 2011Q4

REPORT INFORMATION
  Report Type: 
  Country: None (occurrence: None)
  Receive Date: 20111117
  Receipt Date: 20111117
  Transmission Date: 20120403
  Serious: Yes (Disabling, Other)
  Sender: FDA-Public Use
  Company Number: None

PATIENT
  Sex: Female
  Weight: 79.3795 kg

DRUGS (1)
  1. LIPITOR [Suspect]
     Indication: BLOOD CHOLESTEROL INCREASED
     Dosage: 40 MG ME 1 PER DAY 40 MG HUSBAND 1 PER DAY
     Dates: start: 19990101, end: 20090101

REACTIONS (4)
  - CHONDROPATHY [None]
  - FIBROMYALGIA [None]
  - MUSCULAR WEAKNESS [None]
  - MYALGIA [None]
